FAERS Safety Report 20637999 (Version 1)
Quarter: 2022Q1

REPORT INFORMATION
  Report Type: Spontaneous
  Country: DE (occurrence: DE)
  Receive Date: 20220325
  Receipt Date: 20220325
  Transmission Date: 20220424
  Serious: Yes (Death, Hospitalization)
  Sender: FDA-Public Use
  Company Number: DEU-CUMBERLAND-2022-DE-000001

PATIENT
  Age: 80 Year
  Sex: Male

DRUGS (2)
  1. REDITREX [Suspect]
     Active Substance: METHOTREXATE
     Route: 058
  2. ANAKINRA [Concomitant]
     Active Substance: ANAKINRA
     Route: 058

REACTIONS (7)
  - Neuroendocrine carcinoma of the skin [Fatal]
  - Metastasis [Fatal]
  - Metastases to liver [Fatal]
  - Metastases to kidney [Fatal]
  - Metastases to bone [Fatal]
  - Metastases to central nervous system [Fatal]
  - Skin mass [Fatal]
